FAERS Safety Report 6235362-6 (Version None)
Quarter: 2009Q2

REPORT INFORMATION
  Report Type: 
  Country: None (occurrence: None)
  Receive Date: 20090618
  Receipt Date: 20090611
  Transmission Date: 20091009
  Serious: Yes (Other)
  Sender: FDA-Public Use
  Company Number: US-JNJCH-2009016320

PATIENT
  Age: 89 Year
  Sex: Female
  Weight: 54 kg

DRUGS (1)
  1. BENADRYL [Suspect]
     Indication: HYPERSENSITIVITY
     Dosage: TEXT:ONE EVERY SIX HOURS AS DIRECTED
     Route: 048

REACTIONS (1)
  - HALLUCINATION, VISUAL [None]
